FAERS Safety Report 7583894-0 (Version None)
Quarter: 2011Q2

REPORT INFORMATION
  Report Type: 
  Country: None (occurrence: None)
  Receive Date: 20110630
  Receipt Date: 20110621
  Transmission Date: 20111010
  Serious: Yes (Other)
  Sender: FDA-Public Use
  Company Number: US-JNJFOC-20110611552

PATIENT
  Age: 68 Year
  Sex: Female

DRUGS (10)
  1. ALLEGRA [Concomitant]
     Indication: MULTIPLE ALLERGIES
     Route: 065
  2. NASONEX [Concomitant]
     Indication: MULTIPLE ALLERGIES
     Route: 065
  3. LISTERINE TOTAL CARE ANTICAVITY MOUTHWASH [Suspect]
     Indication: DENTAL DISORDER PROPHYLAXIS
     Dosage: 1/2 CAPFUL
     Route: 048
  4. GLIPIZIDE W/METFORMIN [Concomitant]
     Indication: DIABETES MELLITUS
     Route: 065
  5. CENTRUM MULTIVITAMINS [Concomitant]
     Indication: VITAMIN SUPPLEMENTATION
     Route: 065
  6. ASPIRIN [Concomitant]
     Indication: TACHYCARDIA
     Route: 065
  7. NEXIUM [Concomitant]
     Indication: GASTROOESOPHAGEAL REFLUX DISEASE
     Route: 065
  8. UNKNOWN ALLERGY SHOTS [Concomitant]
     Indication: MULTIPLE ALLERGIES
     Route: 065
  9. BENAZEPRIL W/HYDROCHLOROTHIAZIDE [Concomitant]
     Indication: HYPERTENSION
     Route: 065
  10. SIMVASTATIN [Concomitant]
     Indication: BLOOD CHOLESTEROL INCREASED
     Route: 065

REACTIONS (4)
  - APHTHOUS STOMATITIS [None]
  - PRODUCT QUALITY ISSUE [None]
  - MOUTH HAEMORRHAGE [None]
  - ORAL DISCOMFORT [None]
